FAERS Safety Report 7006284-8 (Version None)
Quarter: 2010Q3

REPORT INFORMATION
  Report Type: 
  Country: None (occurrence: None)
  Receive Date: 20100921
  Receipt Date: 20100921
  Transmission Date: 20110219
  Serious: Yes (Hospitalization, Other)
  Sender: FDA-Public Use
  Company Number: DE-ABBOTT-10P-062-0666183-00

PATIENT
  Sex: Male
  Weight: 58 kg

DRUGS (22)
  1. HUMIRA [Suspect]
     Indication: CROHN'S DISEASE
     Route: 058
     Dates: start: 20090526, end: 20100609
  2. DECORTIN [Concomitant]
     Indication: PRODUCT USED FOR UNKNOWN INDICATION
     Dosage: 10MG/D
  3. PANTOPRAZOLE SODIUM [Concomitant]
     Indication: PRODUCT USED FOR UNKNOWN INDICATION
  4. VITAMIN B-12 [Concomitant]
     Indication: PRODUCT USED FOR UNKNOWN INDICATION
  5. TRANSTEC [Concomitant]
     Indication: PRODUCT USED FOR UNKNOWN INDICATION
     Route: 062
  6. TEMGESIC [Concomitant]
     Indication: PRODUCT USED FOR UNKNOWN INDICATION
     Dosage: 0.4 SL IF REQUIRED
  7. TEMGESIC [Concomitant]
  8. VITAMIN D [Concomitant]
     Indication: PRODUCT USED FOR UNKNOWN INDICATION
  9. CALZIUM [Concomitant]
     Indication: PRODUCT USED FOR UNKNOWN INDICATION
  10. BUDESONIDE [Concomitant]
     Indication: PRODUCT USED FOR UNKNOWN INDICATION
     Dosage: ORAL/LOCAL
  11. SYSTEMIC STEROIDS [Concomitant]
     Indication: CONDITION AGGRAVATED
     Dosage: 100 MG DAILY
  12. AZATHIOPRIN/6MP [Concomitant]
     Indication: PRODUCT USED FOR UNKNOWN INDICATION
     Dosage: 2 TO 2.5MG/KG BODY WEIGHT
  13. METHOTREXATE [Concomitant]
     Indication: PRODUCT USED FOR UNKNOWN INDICATION
     Dosage: WEEKLY;INTERMITTENT DOSE REDUCED TO 10MG
     Route: 058
  14. PREDNISOLONE SODIUM SUCCINATE INJ [Concomitant]
     Indication: PRODUCT USED FOR UNKNOWN INDICATION
     Route: 042
  15. IRON INFUSIONS VENOFAIR IN 100ML NACL [Concomitant]
     Indication: PRODUCT USED FOR UNKNOWN INDICATION
     Route: 042
  16. PANZYTRAT [Concomitant]
     Indication: PRODUCT USED FOR UNKNOWN INDICATION
     Dosage: 40IE TID
  17. NEXIUM [Concomitant]
     Indication: PRODUCT USED FOR UNKNOWN INDICATION
     Route: 042
  18. VOLTAREN [Concomitant]
     Indication: PRODUCT USED FOR UNKNOWN INDICATION
     Dosage: RES. CAPSULES BID, IF REQUIRED
  19. URBASON [Concomitant]
     Indication: PRODUCT USED FOR UNKNOWN INDICATION
     Dosage: 1/2-16 MG TAB DAILY
  20. COLO PLEON [Concomitant]
     Indication: PRODUCT USED FOR UNKNOWN INDICATION
  21. AMITRIPTYLINE HCL [Concomitant]
     Indication: PRODUCT USED FOR UNKNOWN INDICATION
  22. APLONA [Concomitant]
     Indication: PRODUCT USED FOR UNKNOWN INDICATION
     Dosage: 5-8 SACHETS ACCORDING TO STOOL AMOUNT

REACTIONS (25)
  - ABDOMINAL NEOPLASM [None]
  - ABDOMINAL PAIN [None]
  - ANAL STENOSIS [None]
  - ATELECTASIS [None]
  - BLOOD THYROID STIMULATING HORMONE DECREASED [None]
  - BODY TEMPERATURE INCREASED [None]
  - CACHEXIA [None]
  - CENTRAL VENOUS CATHETERISATION [None]
  - COLONIC STENOSIS [None]
  - DECREASED APPETITE [None]
  - DIARRHOEA [None]
  - ECZEMA [None]
  - GASTROINTESTINAL ANASTOMOTIC LEAK [None]
  - GENERAL PHYSICAL HEALTH DETERIORATION [None]
  - HYPOCHROMIC ANAEMIA [None]
  - INFLAMMATORY MARKER INCREASED [None]
  - LUNG INFILTRATION [None]
  - MALNUTRITION [None]
  - PLEURAL EFFUSION [None]
  - PNEUMONIA [None]
  - PNEUMOTHORAX [None]
  - SEPSIS [None]
  - SMALL INTESTINAL OBSTRUCTION [None]
  - WEIGHT DECREASED [None]
  - WOUND SECRETION [None]
